FAERS Safety Report 8337295-8 (Version None)
Quarter: 2012Q2

REPORT INFORMATION
  Report Type: 
  Country: None (occurrence: None)
  Receive Date: 20120504
  Receipt Date: 20120502
  Transmission Date: 20120825
  Serious: Yes (Life-Threatening)
  Sender: FDA-Public Use
  Company Number: CA-ROCHE-1065353

PATIENT
  Age: 38 Year
  Sex: Female
  Weight: 80.812 kg

DRUGS (1)
  1. TAMIFLU [Suspect]
     Indication: PRODUCT USED FOR UNKNOWN INDICATION
     Route: 065

REACTIONS (5)
  - DYSPNOEA [None]
  - ANAPHYLACTIC REACTION [None]
  - CHEST PAIN [None]
  - OEDEMA PERIPHERAL [None]
  - URTICARIA [None]
